FAERS Safety Report 4677564-6 (Version None)
Quarter: 2005Q2

REPORT INFORMATION
  Report Type: 
  Country: None (occurrence: None)
  Receive Date: 20050526
  Receipt Date: 20050526
  Transmission Date: 20051028
  Serious: Yes (Hospitalization)
  Sender: FDA-Public Use
  Company Number: None

PATIENT
  Age: 50 Year
  Sex: Male
  Weight: 56.246 kg

DRUGS (3)
  1. ASPIRIN [Suspect]
     Indication: PAIN
     Dosage: 325 MG PRN
  2. FELODIPINE [Concomitant]
  3. NICOTINE [Concomitant]

REACTIONS (4)
  - HAEMATEMESIS [None]
  - INCORRECT DOSE ADMINISTERED [None]
  - RECTAL HAEMORRHAGE [None]
  - SELF-MEDICATION [None]
